FAERS Safety Report 6530474-1 (Version None)
Quarter: 2010Q1

REPORT INFORMATION
  Report Type: 
  Country: None (occurrence: None)
  Receive Date: 20100106
  Receipt Date: 20100106
  Transmission Date: 20100710
  Serious: Yes (Hospitalization)
  Sender: FDA-Public Use
  Company Number: None

PATIENT

DRUGS (2)
  1. DAPSONE [Suspect]
     Indication: ARTHROPOD BITE
     Dosage: (1) TAB 4 TIMES/DAY BY MOUTH
     Route: 048
     Dates: start: 20090424, end: 20090428
  2. SULFAMETHOXAZOLE AND TRIMETHOPRIM [Suspect]
     Indication: ARTHROPOD BITE
     Dosage: (1) TAB 2 TIMES/DAY BY  MOUTH
     Route: 048
     Dates: start: 20090424, end: 20090428

REACTIONS (9)
  - CYANOSIS [None]
  - DYSPNOEA [None]
  - FATIGUE [None]
  - HEADACHE [None]
  - METHAEMOGLOBINAEMIA [None]
  - NAUSEA [None]
  - PALPITATIONS [None]
  - PRURITUS [None]
  - RASH GENERALISED [None]
